FAERS Safety Report 5747640-5 (Version None)
Quarter: 2008Q2

REPORT INFORMATION
  Report Type: 
  Country: None (occurrence: None)
  Receive Date: 20080523
  Receipt Date: 20080512
  Transmission Date: 20081010
  Serious: Yes (Hospitalization)
  Sender: FDA-Public Use
  Company Number: IL-GENENTECH-260564

PATIENT
  Sex: Female

DRUGS (7)
  1. RITUXIMAB [Suspect]
     Indication: B-CELL LYMPHOMA
     Dosage: 600 MG, UNKNOWN
     Route: 065
     Dates: start: 20080304
  2. CISPLATIN [Suspect]
     Indication: B-CELL LYMPHOMA
     Dosage: 165 MG, UNK
     Dates: start: 20080306
  3. DEXAMETHASONE TAB [Suspect]
     Indication: B-CELL LYMPHOMA
     Dosage: 40 MG, UNK
     Dates: start: 20080306
  4. CYTARABINE [Suspect]
     Indication: B-CELL LYMPHOMA
     Dosage: 6600 MG, UNK
     Dates: start: 20080308
  5. NEUPOGEN [Suspect]
     Indication: B-CELL LYMPHOMA
     Dosage: 300 A?G, UNK
  6. VENTOLIN [Concomitant]
     Indication: DRUG USE FOR UNKNOWN INDICATION
  7. SYMBICORT [Concomitant]
     Indication: DRUG USE FOR UNKNOWN INDICATION

REACTIONS (1)
  - RENAL FAILURE ACUTE [None]
